FAERS Safety Report 6208193-0 (Version None)
Quarter: 2009Q2

REPORT INFORMATION
  Report Type: 
  Country: None (occurrence: None)
  Receive Date: 20090529
  Receipt Date: 20090526
  Transmission Date: 20091009
  Serious: Yes (Hospitalization)
  Sender: FDA-Public Use
  Company Number: US-BRISTOL-MYERS SQUIBB COMPANY-14638324

PATIENT
  Age: 83 Year
  Sex: Male
  Weight: 68 kg

DRUGS (13)
  1. MEGACE [Suspect]
     Indication: WEIGHT DECREASED
     Route: 048
     Dates: start: 20090429, end: 20090429
  2. PREDNISONE [Concomitant]
     Route: 048
     Dates: start: 20081117, end: 20090429
  3. SUNITINIB MALATE [Concomitant]
     Indication: PROSTATE CANCER
     Route: 048
     Dates: start: 20090226, end: 20090428
  4. ACIPHEX [Concomitant]
  5. FRAGMIN [Concomitant]
     Dates: start: 20090331
  6. ATENOLOL [Concomitant]
  7. ALPRAZOLAM [Concomitant]
  8. COLACE [Concomitant]
     Dates: start: 20090402
  9. LOVASTATIN [Concomitant]
  10. METFORMIN HCL [Concomitant]
  11. AVELOX [Concomitant]
     Dates: end: 20090429
  12. OXYCODONE HCL [Concomitant]
     Dates: start: 20090331
  13. AMBIEN [Concomitant]
     Dates: start: 20090120

REACTIONS (2)
  - NAUSEA [None]
  - PAIN [None]
